FAERS Safety Report 20063485 (Version 1)
Quarter: 2021Q4

REPORT INFORMATION
  Report Type: Spontaneous
  Country: US (occurrence: None)
  Receive Date: 20211112
  Receipt Date: 20211112
  Transmission Date: 20220304
  Serious: Yes (Other)
  Sender: FDA-Public Use
  Company Number: None

PATIENT
  Sex: Female

DRUGS (1)
  1. REMDESIVIR [Suspect]
     Active Substance: REMDESIVIR
     Indication: COVID-19 pneumonia
     Dates: start: 20211110, end: 20211111

REACTIONS (3)
  - Pruritus [None]
  - Oropharyngeal pain [None]
  - Rash [None]

NARRATIVE: CASE EVENT DATE: 20211111
